FAERS Safety Report 16465430 (Version 1)
Quarter: 2019Q2

REPORT INFORMATION
  Report Type: Spontaneous
  Country: FR (occurrence: FR)
  Receive Date: 20190621
  Receipt Date: 20190621
  Transmission Date: 20190711
  Serious: Yes (Hospitalization)
  Sender: FDA-Public Use
  Company Number: FR-ASTRAZENECA-2019SE88495

PATIENT
  Age: 69 Year
  Sex: Male

DRUGS (3)
  1. DURVALUMAB. [Suspect]
     Active Substance: DURVALUMAB
     Indication: GLIOBLASTOMA
     Dosage: FIRST DOSE
     Route: 042
     Dates: start: 20170908
  2. DURVALUMAB. [Suspect]
     Active Substance: DURVALUMAB
     Indication: GLIOBLASTOMA
     Dosage: SECOND DOSE
     Route: 042
     Dates: start: 20171006
  3. DURVALUMAB. [Suspect]
     Active Substance: DURVALUMAB
     Indication: GLIOBLASTOMA
     Dosage: THIRD DOSE
     Route: 042
     Dates: start: 20171107

REACTIONS (4)
  - Cerebellar syndrome [Recovered/Resolved]
  - Vertigo [Unknown]
  - Optic neuropathy [Unknown]
  - Neuritis [Recovered/Resolved]

NARRATIVE: CASE EVENT DATE: 20171121
